FAERS Safety Report 10309938 (Version 6)
Quarter: 2014Q4

REPORT INFORMATION
  Report Type: Report from Study
  Country: GB (occurrence: GB)
  Receive Date: 20140717
  Receipt Date: 20141211
  Transmission Date: 20150528
  Serious: Yes (Hospitalization)
  Sender: FDA-Public Use
  Company Number: GB-ROCHE-1433719

PATIENT
  Age: 66 Year
  Sex: Female
  Weight: 65.8 kg

DRUGS (10)
  1. PARACETAMOL [Concomitant]
     Active Substance: ACETAMINOPHEN
     Route: 065
     Dates: start: 20140723
  2. BEVACIZUMAB [Suspect]
     Active Substance: BEVACIZUMAB
     Indication: COLORECTAL CANCER METASTATIC
     Dosage: LAST DOSE PRIOR TO SAE 03/JUN/2014
     Route: 042
     Dates: start: 20140128
  3. DOCUSATE [Concomitant]
     Active Substance: DOCUSATE
     Route: 065
     Dates: start: 20140714
  4. DOCUSATE [Concomitant]
     Active Substance: DOCUSATE
     Route: 065
     Dates: start: 20140723
  5. LERCANIDIPINE HYDROCHLORIDE [Concomitant]
     Active Substance: LERCANIDIPINE HYDROCHLORIDE
     Indication: COLORECTAL CANCER METASTATIC
     Route: 065
     Dates: start: 20140410
  6. COTRIMOXAZOLE [Concomitant]
     Active Substance: SULFAMETHOXAZOLE\TRIMETHOPRIM
     Dosage: 7 DAY COURSE.
     Route: 065
     Dates: start: 20140723, end: 20140730
  7. NEFOPAM [Concomitant]
     Active Substance: NEFOPAM
     Route: 065
     Dates: start: 20140723
  8. CHLORPHENAMINE [Concomitant]
     Active Substance: CHLORPHENIRAMINE MALEATE
     Route: 065
     Dates: start: 20140714
  9. PARACETAMOL [Concomitant]
     Active Substance: ACETAMINOPHEN
     Route: 065
     Dates: start: 20140714
  10. CHLORPHENAMINE [Concomitant]
     Active Substance: CHLORPHENIRAMINE MALEATE
     Route: 065
     Dates: start: 20140723

REACTIONS (1)
  - Bile duct obstruction [Recovered/Resolved]

NARRATIVE: CASE EVENT DATE: 20140728
